FAERS Safety Report 8002465-5 (Version None)
Quarter: 2011Q4

REPORT INFORMATION
  Report Type: 
  Country: None (occurrence: None)
  Receive Date: 20111222
  Receipt Date: 20111212
  Transmission Date: 20120403
  Serious: Yes (Other)
  Sender: FDA-Public Use
  Company Number: CA-JNJFOC-20111207447

PATIENT
  Sex: Male
  Weight: 60.4 kg

DRUGS (2)
  1. REMICADE [Suspect]
     Indication: CROHN'S DISEASE
     Route: 042
     Dates: start: 20110518
  2. IMURAN [Concomitant]

REACTIONS (2)
  - VOMITING [None]
  - INFLUENZA LIKE ILLNESS [None]
